FAERS Safety Report 8065261-9 (Version None)
Quarter: 2011Q4

REPORT INFORMATION
  Report Type: 
  Country: None (occurrence: None)
  Receive Date: 20111221
  Receipt Date: 20110420
  Transmission Date: 20120403
  Serious: Yes (Hospitalization)
  Sender: FDA-Public Use
  Company Number: PHHY2011US34769

PATIENT
  Age: 41 Year
  Sex: Male

DRUGS (7)
  1. DILAUDID [Concomitant]
  2. EXJADE [Suspect]
     Indication: SICKLE CELL ANAEMIA WITH CRISIS
     Dosage: 1000 MG, DAILY, ORAL
     Route: 048
     Dates: start: 20090331
  3. BENADRYL (AMMONIUM CHLORIDE, DIPHENHYDRAMINE HYDROCHLORIDE, MENTHOL, S [Concomitant]
  4. FOLIC ACID [Concomitant]
  5. OPANA [Concomitant]
  6. DILANTIN [Concomitant]
  7. RESTORIL [Concomitant]

REACTIONS (1)
  - SICKLE CELL ANAEMIA WITH CRISIS [None]
